FAERS Safety Report 7444140-1 (Version None)
Quarter: 2011Q2

REPORT INFORMATION
  Report Type: 
  Country: None (occurrence: None)
  Receive Date: 20110419
  Receipt Date: 20110404
  Transmission Date: 20111010
  Serious: Yes (Death)
  Sender: FDA-Public Use
  Company Number: US-2011-10212

PATIENT
  Age: 38 Year
  Sex: Male

DRUGS (6)
  1. FLUDARABINE (FLUDARABINE PHOSPHATE) [Concomitant]
  2. PHENYTOIN [Concomitant]
  3. METHOTREXATE [Concomitant]
  4. BUSULFEX [Suspect]
     Indication: STEM CELL TRANSPLANT
  5. FILGRASTIM (FILGRASTIM) [Concomitant]
  6. TACROLIMUS [Concomitant]

REACTIONS (2)
  - GRAFT VERSUS HOST DISEASE [None]
  - ACUTE MYELOID LEUKAEMIA RECURRENT [None]
